FAERS Safety Report 9744629 (Version 1)
Quarter: 2013Q4

REPORT INFORMATION
  Report Type: Spontaneous
  Country: US (occurrence: US)
  Receive Date: 20131210
  Receipt Date: 20131210
  Transmission Date: 20140711
  Serious: Yes (Hospitalization, Other)
  Sender: FDA-Public Use
  Company Number: US-GILEAD-2013-0089596

PATIENT
  Age: 86 Year
  Sex: Female

DRUGS (8)
  1. LETAIRIS [Suspect]
     Indication: PRODUCT USED FOR UNKNOWN INDICATION
     Dosage: 5 MG, QD
     Route: 048
     Dates: start: 20130910
  2. ASPIRIN [Concomitant]
  3. TORSEMIDE [Concomitant]
  4. SPIRIVA [Concomitant]
  5. PRAVASTATIN [Concomitant]
  6. AMLODIPINE [Concomitant]
  7. JANUVIA [Concomitant]
  8. FLUOXETINE [Concomitant]

REACTIONS (8)
  - Chronic obstructive pulmonary disease [Unknown]
  - Pulmonary arterial hypertension [Unknown]
  - Dehydration [Unknown]
  - Atrial fibrillation [Unknown]
  - Gastrointestinal disorder [Unknown]
  - Fluid overload [Unknown]
  - Cardiac failure [Unknown]
  - Dyspnoea [Unknown]
